FAERS Safety Report 11517943 (Version 2)
Quarter: 2016Q2

REPORT INFORMATION
  Report Type: Spontaneous
  Country: US (occurrence: US)
  Receive Date: 20150917
  Receipt Date: 20160629
  Transmission Date: 20160815
  Serious: No
  Sender: FDA-Public Use
  Company Number: US-RB-078667-15

PATIENT
  Age: 77 Year
  Sex: Male

DRUGS (1)
  1. MUCINEX [Suspect]
     Active Substance: GUAIFENESIN
     Indication: PRODUCT USED FOR UNKNOWN INDICATION
     Dosage: 1200MG. TOOK WHENEVER SYMPTOMS WERE FELT.,BID
     Route: 065
     Dates: start: 20150318

REACTIONS (1)
  - Drug ineffective [Not Recovered/Not Resolved]
